FAERS Safety Report 6444352-X (Version None)
Quarter: 2009Q4

REPORT INFORMATION
  Report Type: 
  Country: None (occurrence: None)
  Receive Date: 20091118
  Receipt Date: 20091112
  Transmission Date: 20100525
  Serious: Yes (Death, Hospitalization)
  Sender: FDA-Public Use
  Company Number: DE-CELGENEUS-062-21880-09050194

PATIENT
  Sex: Male
  Weight: 85 kg

DRUGS (10)
  1. REVLIMID [Suspect]
     Indication: PLASMACYTOMA
     Route: 048
     Dates: start: 20080716, end: 20080724
  2. REVLIMID [Suspect]
     Route: 048
     Dates: start: 20080725, end: 20080812
  3. REVLIMID [Suspect]
     Route: 048
     Dates: start: 20081203, end: 20081217
  4. REVLIMID [Suspect]
     Route: 048
     Dates: start: 20090413, end: 20090430
  5. FORTECORTIN [Suspect]
     Indication: PLASMACYTOMA
     Route: 065
     Dates: start: 20080725
  6. BORTEZOMIB [Suspect]
     Indication: PLASMACYTOMA
     Route: 065
  7. BENDAMUSTINE [Suspect]
     Indication: DRUG USE FOR UNKNOWN INDICATION
     Route: 065
  8. PENTAMIDINE ISETHIONATE [Concomitant]
     Indication: DRUG USE FOR UNKNOWN INDICATION
     Route: 055
  9. ZOMETA [Concomitant]
     Indication: DRUG USE FOR UNKNOWN INDICATION
     Route: 065
  10. ENOXAPARIN SODIUM [Concomitant]
     Indication: THROMBOSIS PROPHYLAXIS
     Route: 065

REACTIONS (7)
  - ANAEMIA [None]
  - BRONCHOPULMONARY ASPERGILLOSIS [None]
  - EPISTAXIS [None]
  - MALIGNANT NEOPLASM PROGRESSION [None]
  - PANCYTOPENIA [None]
  - SEPSIS [None]
  - THROMBOCYTOPENIA [None]
